FAERS Safety Report 5333213-5 (Version None)
Quarter: 2007Q2

REPORT INFORMATION
  Report Type: 
  Country: None (occurrence: None)
  Receive Date: 20070524
  Receipt Date: 20070516
  Transmission Date: 20071010
  Serious: Yes (Other)
  Sender: FDA-Public Use
  Company Number: PHBS2007JP08026

PATIENT
  Age: 12 Year
  Sex: Male

DRUGS (5)
  1. PROPOFOL [Concomitant]
     Indication: ANAESTHESIA
  2. FENTANYL [Concomitant]
     Indication: ANAESTHESIA
  3. VECURONIUM BROMIDE [Concomitant]
     Indication: ANAESTHESIA
     Dosage: 5 MG, UNK
  4. SEVOFLURANE [Concomitant]
     Indication: ANAESTHESIA
  5. DICLOFENAC SODIUM [Suspect]
     Indication: PAIN
     Dosage: 25 MG/DAY
     Route: 054

REACTIONS (2)
  - GLOBAL AMNESIA [None]
  - VISUAL ACUITY REDUCED [None]
